FAERS Safety Report 20645119 (Version 2)
Quarter: 2022Q2

REPORT INFORMATION
  Report Type: Spontaneous
  Country: DE (occurrence: DE)
  Receive Date: 20220328
  Receipt Date: 20220414
  Transmission Date: 20220721
  Serious: No
  Sender: FDA-Public Use
  Company Number: DE-LUPIN PHARMACEUTICALS INC.-2022-04325

PATIENT
  Age: 86 Year
  Sex: Female

DRUGS (12)
  1. HYDROCORTISONE [Suspect]
     Active Substance: HYDROCORTISONE
     Indication: Product used for unknown indication
     Dosage: 1 DOSAGE FORM, BID (TABLET, STRENGTH: 10 MG)
     Route: 048
  2. HYDROMORPHONE [Suspect]
     Active Substance: HYDROMORPHONE
     Indication: Fracture pain
     Dosage: 1 DOSAGE FORM, BID (STRENGTH: 10 MG)
     Route: 065
  3. AMLODIPINE [Concomitant]
     Active Substance: AMLODIPINE BESYLATE
     Indication: Product used for unknown indication
     Dosage: 1 DOSAGE FORM, QD
     Route: 048
  4. CANDESARTAN CILEXETIL [Concomitant]
     Active Substance: CANDESARTAN CILEXETIL
     Indication: Product used for unknown indication
     Dosage: UNK UNK, BID (1-0-0-1/2)
     Route: 048
  5. GABAPENTIN [Concomitant]
     Active Substance: GABAPENTIN
     Indication: Product used for unknown indication
     Dosage: 1 DOSAGE FORM, BID (FORMULATION: KAP (SIC))
     Route: 048
  6. CALCIUM CARBONATE [Concomitant]
     Active Substance: CALCIUM CARBONATE
     Indication: Product used for unknown indication
     Dosage: 1 DOSAGE FORM, BID (CALCIUM 500MG/COLECALCIFEROL 400IE)
     Route: 048
  7. POLYETHYLENE GLYCOLS [Concomitant]
     Active Substance: POLYETHYLENE GLYCOLS
     Indication: Product used for unknown indication
     Dosage: UNK UNK, BID
     Route: 048
  8. MIRTAZAPINE [Concomitant]
     Active Substance: MIRTAZAPINE
     Indication: Product used for unknown indication
     Dosage: 1 DOSAGE FORM, QD
     Route: 048
  9. FOLIC ACID [Concomitant]
     Active Substance: FOLIC ACID
     Indication: Product used for unknown indication
     Dosage: 1 DOSAGE FORM, QD
     Route: 048
  10. SPIRONOLACTONE [Concomitant]
     Active Substance: SPIRONOLACTONE
     Indication: Product used for unknown indication
     Dosage: 1 DOSAGE FORM, QD
     Route: 048
  11. PANTOPRAZOLE [Concomitant]
     Active Substance: PANTOPRAZOLE
     Indication: Product used for unknown indication
     Dosage: 1 DOSAGE FORM, QD
     Route: 048
  12. METAMIZOLE [Concomitant]
     Active Substance: METAMIZOLE
     Indication: Product used for unknown indication
     Dosage: 8 DOSAGE FORM, QD
     Route: 048

REACTIONS (3)
  - Wrong product administered [Unknown]
  - Product name confusion [Unknown]
  - Therapeutic product effect incomplete [Unknown]
